FAERS Safety Report 5096709-X (Version None)
Quarter: 2006Q3

REPORT INFORMATION
  Report Type: 
  Country: None (occurrence: None)
  Receive Date: 20060831
  Receipt Date: 20060501
  Transmission Date: 20061208
  Serious: Yes (Disabling)
  Sender: FDA-Public Use
  Company Number: USA-2006-0025028

PATIENT
  Age: 43 Year
  Sex: Female

DRUGS (15)
  1. OXYCONTIN [Suspect]
     Indication: DRUG USE FOR UNKNOWN INDICATION
     Dosage: 20 MG, DAILY, ORAL
     Route: 048
     Dates: start: 20060214, end: 20060228
  2. FAMVIR [Suspect]
     Indication: DRUG USE FOR UNKNOWN INDICATION
     Dosage: 500 MG, DAILY, ORAL
     Route: 048
     Dates: start: 20060214
  3. DEXAMETHASONE TAB [Suspect]
     Indication: DRUG USE FOR UNKNOWN INDICATION
     Dosage: 8 MG, DAILY, INTRAVENOUS
     Route: 042
     Dates: start: 20060215, end: 20060215
  4. METHOTREXATE [Suspect]
     Indication: DRUG USE FOR UNKNOWN INDICATION
     Dosage: 800 MG/M2, DAILY, INTRAVENOUS
     Route: 042
     Dates: start: 20060215, end: 20060215
  5. ALLOPURINOL [Suspect]
     Indication: DRUG USE FOR UNKNOWN INDICATION
     Dosage: 300 MG, DAILY, ORAL
     Route: 048
     Dates: start: 20060119
  6. ZOFRAN [Suspect]
     Indication: DRUG USE FOR UNKNOWN INDICATION
     Dosage: 16 MG, DAILY, ORAL
     Route: 048
     Dates: start: 20060214, end: 20060217
  7. FLUCONAZOLE [Suspect]
     Indication: DRUG USE FOR UNKNOWN INDICATION
     Dosage: 200 MG, DAILY, ORAL
     Route: 048
     Dates: start: 20060215
  8. ACETAMINOPHEN [Suspect]
     Indication: DRUG USE FOR UNKNOWN INDICATION
     Dosage: 4 GRAM, DAILY, ORAL
     Route: 048
     Dates: start: 20060213, end: 20060222
  9. FUNGIZONE [Concomitant]
  10. NYSTATIN [Concomitant]
  11. LACTULOSE [Concomitant]
  12. COLOXYL WITH SENNA [Concomitant]
  13. ATORVASTATIN CALCIUM [Concomitant]
  14. OMEPRAZOLE [Concomitant]
  15. RAMIPRIL [Concomitant]

REACTIONS (2)
  - BRADYCARDIA [None]
  - CHEST DISCOMFORT [None]
